FAERS Safety Report 9608291 (Version 1)
Quarter: 2013Q4

REPORT INFORMATION
  Report Type: Spontaneous
  Country: US (occurrence: US)
  Receive Date: 20131009
  Receipt Date: 20131009
  Transmission Date: 20140711
  Serious: No
  Sender: FDA-Public Use
  Company Number: US-PFIZER INC-2013288326

PATIENT
  Age: 5 Year
  Sex: Male
  Weight: 18.14 kg

DRUGS (8)
  1. QUILLIVANT XR [Suspect]
     Indication: ATTENTION DEFICIT/HYPERACTIVITY DISORDER
     Dosage: 4 ML, DAILY
     Dates: start: 2013, end: 2013
  2. QUILLIVANT XR [Suspect]
     Indication: DISTURBANCE IN ATTENTION
     Dosage: 4 ML, 1X/DAY
     Dates: start: 2013
  3. QUILLIVANT XR [Suspect]
     Indication: IMPULSE-CONTROL DISORDER
  4. QUILLIVANT XR [Suspect]
     Indication: CONDUCT DISORDER
  5. KAPVAY ER [Suspect]
     Indication: ATTENTION DEFICIT/HYPERACTIVITY DISORDER
     Dosage: UNK, 2X/DAY
     Dates: start: 2013
  6. KAPVAY ER [Suspect]
     Indication: DISTURBANCE IN ATTENTION
  7. KAPVAY ER [Suspect]
     Indication: IMPULSE-CONTROL DISORDER
  8. KAPVAY ER [Suspect]
     Indication: CONDUCT DISORDER

REACTIONS (3)
  - Off label use [Unknown]
  - Drug ineffective for unapproved indication [Unknown]
  - Off label use [Unknown]
